FAERS Safety Report 23214421 (Version 15)
Quarter: 2025Q4

REPORT INFORMATION
  Report Type: Spontaneous
  Country: US (occurrence: US)
  Receive Date: 20231121
  Receipt Date: 20251023
  Transmission Date: 20260117
  Serious: Yes (Hospitalization, Other)
  Sender: VERTEX
  Company Number: US-VERTEX PHARMACEUTICALS-2023-017373

PATIENT
  Age: 36 Year

DRUGS (19)
  1. TRIKAFTA [Suspect]
     Active Substance: ELEXACAFTOR\IVACAFTOR\TEZACAFTOR
     Indication: Cystic fibrosis
     Dosage: UNKNOWN DOSAGE REGIMEN
     Route: 048
     Dates: start: 2022
  2. CAYSTON [Suspect]
     Active Substance: AZTREONAM
     Indication: Product used for unknown indication
     Dosage: UNK FREQ
     Route: 065
  3. PULMOZYME [Concomitant]
     Active Substance: DORNASE ALFA
     Route: 055
  4. TOBI [Concomitant]
     Active Substance: TOBRAMYCIN
     Route: 055
  5. ALBUTEROL [Concomitant]
     Active Substance: ALBUTEROL
     Route: 055
  6. CREON [Concomitant]
     Active Substance: PANCRELIPASE AMYLASE\PANCRELIPASE LIPASE\PANCRELIPASE PROTEASE
     Dosage: UNK
  7. AZITHROMYCIN [Concomitant]
     Active Substance: AZITHROMYCIN
  8. VITAMIN C [Concomitant]
     Active Substance: ASCORBIC ACID
  9. COLLAGEN [Concomitant]
     Active Substance: COLLAGEN
  10. HYPERTONIC [Concomitant]
     Route: 055
  11. NAC N ACETYL L CYSTEINE [Concomitant]
  12. OMEGA 3 [Concomitant]
     Active Substance: CAPSAICIN
  13. KRILL OIL [Concomitant]
     Active Substance: DIETARY SUPPLEMENT\KRILL OIL
  14. COLISTIMETHATE [Concomitant]
     Active Substance: COLISTIMETHATE SODIUM
     Route: 055
  15. ADVIL [Concomitant]
     Active Substance: IBUPROFEN
  16. TYLENOL [Concomitant]
     Active Substance: ACETAMINOPHEN
  17. Phytoprofen [Concomitant]
  18. ZYRTEC [Concomitant]
     Active Substance: CETIRIZINE HYDROCHLORIDE
  19. PROMETHAZINE [Concomitant]
     Active Substance: PROMETHAZINE HYDROCHLORIDE
     Indication: Nausea

REACTIONS (42)
  - Cystic fibrosis lung [Not Recovered/Not Resolved]
  - Pancreatitis [Unknown]
  - Temporomandibular pain and dysfunction syndrome [Not Recovered/Not Resolved]
  - Tendonitis [Not Recovered/Not Resolved]
  - Hernia [Not Recovered/Not Resolved]
  - Surgery [Unknown]
  - Pain [Not Recovered/Not Resolved]
  - Pulmonary bullectomy [Unknown]
  - Pulmonary resection [Unknown]
  - Hospitalisation [Unknown]
  - Bronchial secretion retention [Unknown]
  - Inflammation [Not Recovered/Not Resolved]
  - Respiratory tract congestion [Unknown]
  - Hyperhidrosis [Unknown]
  - Initial insomnia [Recovered/Resolved]
  - Acne cystic [Recovering/Resolving]
  - Mental disorder [Unknown]
  - Anaemia [Unknown]
  - Arthritis [Recovering/Resolving]
  - Sports injury [Unknown]
  - Malabsorption [Unknown]
  - Insomnia [Recovered/Resolved]
  - Productive cough [Unknown]
  - Dyspnoea [Unknown]
  - Thinking abnormal [Not Recovered/Not Resolved]
  - Forced expiratory volume decreased [Unknown]
  - Pneumothorax [Recovered/Resolved]
  - Breath sounds abnormal [Recovered/Resolved]
  - Tooth disorder [Unknown]
  - Weight gain poor [Unknown]
  - Fatigue [Unknown]
  - Illness [Unknown]
  - Pneumonia [Recovered/Resolved]
  - COVID-19 [Recovered/Resolved]
  - Taste disorder [Unknown]
  - Parosmia [Unknown]
  - Skin odour abnormal [Unknown]
  - Brain fog [Recovering/Resolving]
  - Abdominal distension [Recovering/Resolving]
  - Acne [Unknown]
  - Nasopharyngitis [Not Recovered/Not Resolved]
  - Abdominal pain upper [Unknown]

NARRATIVE: CASE EVENT DATE: 20230101
